FAERS Safety Report 9013766 (Version 1)
Quarter: 2013Q1

REPORT INFORMATION
  Report Type: Spontaneous
  Country: US (occurrence: None)
  Receive Date: 20130108
  Receipt Date: 20130108
  Transmission Date: 20140127
  Serious: Yes (Other)
  Sender: FDA-Public Use
  Company Number: None

PATIENT
  Sex: Female

DRUGS (2)
  1. ESCITALOPRAM [Suspect]
     Dosage: 20 MG TAB 1.5 QD PO
     Route: 048
     Dates: start: 201203, end: 201212
  2. ESCITALOPRAM [Suspect]
     Dosage: 20 MG TAB 1.5 QD PO
     Route: 048
     Dates: start: 201203, end: 201212

REACTIONS (6)
  - Apathy [None]
  - Dizziness [None]
  - Dizziness [None]
  - Mental impairment [None]
  - Depression [None]
  - Condition aggravated [None]
